FAERS Safety Report 15570303 (Version 1)
Quarter: 2018Q4

REPORT INFORMATION
  Report Type: Spontaneous
  Country: US (occurrence: US)
  Receive Date: 20181026
  Receipt Date: 20181026
  Transmission Date: 20190205
  Serious: Yes (Hospitalization)
  Sender: FDA-Public Use
  Company Number: None

PATIENT
  Age: 14 Year
  Sex: Male
  Weight: 70 kg

DRUGS (12)
  1. DAUNORUBICIN 0 MG [Suspect]
     Active Substance: DAUNORUBICIN
     Indication: CHEMOTHERAPY
     Dates: end: 20180303
  2. CYCLOPHOSPHAMIDE 0 MG [Suspect]
     Active Substance: CYCLOPHOSPHAMIDE
     Indication: CHEMOTHERAPY
     Dates: end: 20180507
  3. VINCRISTINE SULFATE 6 MG [Suspect]
     Active Substance: VINCRISTINE SULFATE
     Dates: end: 20180928
  4. GLEEVEC [Suspect]
     Active Substance: IMATINIB MESYLATE
     Indication: CHEMOTHERAPY
     Dates: end: 20181005
  5. DOXORUBICIN HYDROCHLORIDE 142.5 MG [Suspect]
     Active Substance: DOXORUBICIN HYDROCHLORIDE
     Indication: CHEMOTHERAPY
     Dates: end: 20180928
  6. DEXAMETHASONE 280 MG [Suspect]
     Active Substance: DEXAMETHASONE
     Indication: CHEMOTHERAPY
     Dates: end: 20181005
  7. ZINECARD [Suspect]
     Active Substance: DEXRAZOXANE HYDROCHLORIDE
     Indication: CHEMOTHERAPY
     Dates: end: 20180928
  8. MERCAPTOPURINE 0 MG [Suspect]
     Active Substance: MERCAPTOPURINE
     Indication: CHEMOTHERAPY
     Dates: end: 20180902
  9. ONCASPAR [Suspect]
     Active Substance: PEGASPARGASE
     Indication: CHEMOTHERAPY
     Dates: end: 20180917
  10. CYTARABINE 0 MG [Suspect]
     Active Substance: CYTARABINE
     Indication: CHEMOTHERAPY
     Dates: end: 20180503
  11. METHOTREXATE 12 MG [Suspect]
     Active Substance: METHOTREXATE
     Indication: CHEMOTHERAPY
     Route: 048
     Dates: end: 20180914
  12. PREDNISONE 0 MG [Suspect]
     Active Substance: PREDNISONE
     Indication: CHEMOTHERAPY
     Dates: end: 20180312

REACTIONS (9)
  - Shock [None]
  - Escherichia test positive [None]
  - Acute kidney injury [None]
  - Pancreatitis [None]
  - Febrile neutropenia [None]
  - Mucosal inflammation [None]
  - Enteritis [None]
  - Hypotension [None]
  - Sepsis [None]

NARRATIVE: CASE EVENT DATE: 20181006
